FAERS Safety Report 4263886-X (Version None)
Quarter: 2004Q1

REPORT INFORMATION
  Report Type: 
  Country: None (occurrence: None)
  Receive Date: 20040102
  Receipt Date: 20031215
  Transmission Date: 20041129
  Serious: Yes (Death, Hospitalization, Other)
  Sender: FDA-Public Use
  Company Number: JP_031202332

PATIENT
  Age: 87 Year
  Sex: Female

DRUGS (3)
  1. VANCOMYCIN HYDROCHLORIDE [Suspect]
     Indication: PNEUMONIA STAPHYLOCOCCAL
     Dosage: 500 MG/DAY
     Dates: start: 20031116, end: 20031119
  2. FERROMIA (FERROUS CITRATE) [Concomitant]
  3. FAMOTIDINE [Concomitant]

REACTIONS (9)
  - BRADYCARDIA [None]
  - C-REACTIVE PROTEIN DECREASED [None]
  - CARDIO-RESPIRATORY ARREST [None]
  - CARDIOGENIC SHOCK [None]
  - DEPRESSED LEVEL OF CONSCIOUSNESS [None]
  - ELECTROCARDIOGRAM ABNORMAL [None]
  - HYPERKALAEMIA [None]
  - PYREXIA [None]
  - RENAL FAILURE [None]
